FAERS Safety Report 5177134-X (Version None)
Quarter: 2006Q4

REPORT INFORMATION
  Report Type: 
  Country: None (occurrence: None)
  Receive Date: 20061207
  Receipt Date: 20061128
  Transmission Date: 20070319
  Serious: Yes (Hospitalization)
  Sender: FDA-Public Use
  Company Number: 2006147160

PATIENT
  Age: 67 Year
  Sex: Female

DRUGS (3)
  1. ZOLOFT [Suspect]
     Dosage: ORAL
     Route: 048
     Dates: start: 20060615, end: 20060903
  2. FOTEMUSTINE (FOTEMUSTINE) [Suspect]
     Indication: MALIGNANT MELANOMA
     Dates: start: 20060710, end: 20060725
  3. TEMOZOLOMIDE (TEMOZOLOMIDE) [Suspect]
     Indication: MALIGNANT MELANOMA
     Dates: start: 20060515, end: 20060703

REACTIONS (8)
  - BRONCHOALVEOLAR LAVAGE ABNORMAL [None]
  - CHOLESTASIS [None]
  - DYSPNOEA [None]
  - LUNG DISORDER [None]
  - PANCYTOPENIA [None]
  - PYREXIA [None]
  - RASH PAPULAR [None]
  - RASH PRURITIC [None]
